FAERS Safety Report 11044788 (Version 1)
Quarter: 2015Q2

REPORT INFORMATION
  Report Type: Spontaneous
  Country: ZA (occurrence: US)
  Receive Date: 20150417
  Receipt Date: 20150417
  Transmission Date: 20150821
  Serious: No
  Sender: FDA-Public Use
  Company Number: ZA-ASTRAZENECA-2015SE34926

PATIENT
  Age: 19 Year
  Sex: Female
  Weight: 62 kg

DRUGS (2)
  1. NEXIUM [Suspect]
     Active Substance: ESOMEPRAZOLE MAGNESIUM
     Indication: GASTROOESOPHAGEAL REFLUX DISEASE
     Route: 048
     Dates: start: 2011
  2. STEROID MEDICATION [Concomitant]
     Active Substance: UNSPECIFIED INGREDIENT

REACTIONS (11)
  - Oropharyngeal pain [Not Recovered/Not Resolved]
  - Nasal discomfort [Not Recovered/Not Resolved]
  - Paranasal sinus discomfort [Unknown]
  - Cluster headache [Not Recovered/Not Resolved]
  - Upper-airway cough syndrome [Not Recovered/Not Resolved]
  - Abdominal discomfort [Unknown]
  - Drug dose omission [Unknown]
  - Polycystic ovaries [Unknown]
  - Gastrooesophageal reflux disease [Not Recovered/Not Resolved]
  - Bronchitis [Not Recovered/Not Resolved]
  - Eating disorder [Not Recovered/Not Resolved]

NARRATIVE: CASE EVENT DATE: 201312
